FAERS Safety Report 25946493 (Version 1)
Quarter: 2025Q4

REPORT INFORMATION
  Report Type: Spontaneous
  Country: US (occurrence: US)
  Receive Date: 20251022
  Receipt Date: 20251022
  Transmission Date: 20260118
  Serious: Yes (Other)
  Sender: PACIRA
  Company Number: US-ORG100016242-2024000643

PATIENT
  Age: 62 Year
  Sex: Female

DRUGS (1)
  1. ZILRETTA [Suspect]
     Active Substance: TRIAMCINOLONE ACETONIDE
     Indication: Osteoarthritis
     Dosage: LEFT KNEE
     Route: 014

REACTIONS (1)
  - Hyperglycaemia [Recovered/Resolved]
